FAERS Safety Report 14579050 (Version 2)
Quarter: 2019Q3

REPORT INFORMATION
  Report Type: Report from Study
  Country: US (occurrence: US)
  Receive Date: 20180227
  Receipt Date: 20190916
  Transmission Date: 20191004
  Serious: Yes (Death, Other)
  Sender: FDA-Public Use
  Company Number: US-TAKEDA-2018TUS004570

PATIENT
  Sex: Male

DRUGS (2)
  1. PONATINIB [Suspect]
     Active Substance: PONATINIB
     Dosage: 30 MILLIGRAM, QD
     Route: 048
  2. PONATINIB [Suspect]
     Active Substance: PONATINIB
     Indication: CHRONIC MYELOID LEUKAEMIA
     Dosage: 45 MILLIGRAM, QD
     Route: 048
     Dates: start: 20151016

REACTIONS (8)
  - Death [Fatal]
  - Renal mass [Unknown]
  - Thrombocytopenia [Unknown]
  - Back pain [Unknown]
  - Hypertension [Unknown]
  - Fatigue [Unknown]
  - Chronic myeloid leukaemia recurrent [Unknown]
  - Splenomegaly [Unknown]
